FAERS Safety Report 25373860 (Version 2)
Quarter: 2025Q4

REPORT INFORMATION
  Report Type: Spontaneous
  Country: US (occurrence: US)
  Receive Date: 20250529
  Receipt Date: 20251031
  Transmission Date: 20260118
  Serious: No
  Sender: PFIZER
  Company Number: US-PFIZER INC-PV202300157224

PATIENT
  Age: 72 Year
  Sex: Male

DRUGS (5)
  1. BOSULIF [Interacting]
     Active Substance: BOSUTINIB MONOHYDRATE
     Dosage: 300 MG, DAILY (ONE TABLET BY MOUTH DAILY)
     Route: 048
  2. BOSULIF [Interacting]
     Active Substance: BOSUTINIB MONOHYDRATE
     Dosage: 400MG TABLET, TAKE 1 TABLET PO DAILY
     Route: 048
  3. BOSULIF [Interacting]
     Active Substance: BOSUTINIB MONOHYDRATE
     Dosage: 100MG TAKE 3 TABLETS DAILY
  4. LANSOPRAZOLE [Suspect]
     Active Substance: LANSOPRAZOLE
     Dosage: UNK
     Route: 048
  5. PEPCID [Suspect]
     Active Substance: FAMOTIDINE
     Dosage: UNK

REACTIONS (4)
  - Potentiating drug interaction [Unknown]
  - Protein urine present [Unknown]
  - Product prescribing error [Unknown]
  - Product prescribing issue [Unknown]
